FAERS Safety Report 6279579-3 (Version None)
Quarter: 2009Q3

REPORT INFORMATION
  Report Type: 
  Country: None (occurrence: None)
  Receive Date: 20090723
  Receipt Date: 20090716
  Transmission Date: 20100115
  Serious: Yes (Other)
  Sender: FDA-Public Use
  Company Number: A0797334A

PATIENT
  Age: 93 Year
  Sex: Female

DRUGS (10)
  1. ADVAIR HFA [Suspect]
     Indication: CHRONIC OBSTRUCTIVE PULMONARY DISEASE
     Dosage: 1PUFF TWICE PER DAY
     Route: 055
     Dates: end: 20090715
  2. NEBULIZER [Concomitant]
  3. OXYGEN [Concomitant]
  4. TEKTURNA [Concomitant]
  5. NORVASC [Concomitant]
  6. IRON [Concomitant]
  7. CALCIUM [Concomitant]
  8. PROZAC [Concomitant]
  9. ATENOLOL [Concomitant]
  10. LASIX [Concomitant]

REACTIONS (2)
  - BLINDNESS [None]
  - VISION BLURRED [None]
